FAERS Safety Report 8422087-1 (Version None)
Quarter: 2012Q2

REPORT INFORMATION
  Report Type: 
  Country: None (occurrence: None)
  Receive Date: 20120608
  Receipt Date: 20120601
  Transmission Date: 20120825
  Serious: Yes (Death)
  Sender: FDA-Public Use
  Company Number: FR-ROCHE-1074691

PATIENT
  Age: 56 Year
  Sex: Female

DRUGS (7)
  1. OFLOXACIN [Concomitant]
     Dates: start: 20120207, end: 20120223
  2. ADRIAMYCIN PFS [Concomitant]
  3. SINTROM [Concomitant]
  4. AVASTIN [Suspect]
     Indication: BREAST CANCER
     Route: 042
     Dates: start: 20120124, end: 20120216
  5. ROCEPHIN [Concomitant]
     Dates: start: 20120207, end: 20120223
  6. TAXOL [Suspect]
     Indication: BREAST CANCER
     Route: 042
     Dates: start: 20120124, end: 20120216
  7. TAMOXIFEN CITRATE [Concomitant]
     Dates: start: 20111101

REACTIONS (2)
  - HAEMORRHAGE [None]
  - DISSEMINATED INTRAVASCULAR COAGULATION [None]
